FAERS Safety Report 5085010-6 (Version None)
Quarter: 2006Q3

REPORT INFORMATION
  Report Type: 
  Country: None (occurrence: None)
  Receive Date: 20060815
  Receipt Date: 20060803
  Transmission Date: 20061208
  Serious: Yes (Death)
  Sender: FDA-Public Use
  Company Number: US200607002146

PATIENT
  Age: 46 Year
  Sex: Male
  Weight: 87.1 kg

DRUGS (14)
  1. CYMBALTA [Suspect]
     Indication: DIABETIC NEUROPATHY
     Dosage: 60 MG
     Dates: start: 20041012
  2. INSULIN [Concomitant]
  3. PANCREASE (PANCRELIPASE) [Concomitant]
  4. CREON [Concomitant]
  5. LISINOPRIL [Concomitant]
  6. REGLAN    /USA/(METOCLOPRAMIDE HYDROCHLORIDE) [Concomitant]
  7. HYDROCODONE (HYDROCODONE) [Concomitant]
  8. OXYCONTIN [Concomitant]
  9. COREG [Concomitant]
  10. SINGULAIR [Concomitant]
  11. ZANAFLEX [Concomitant]
  12. STRATTERA [Concomitant]
  13. LIBRIUM [Concomitant]
  14. DESIPRAMINE HCL [Concomitant]

REACTIONS (1)
  - SUDDEN DEATH [None]
